FAERS Safety Report 15542045 (Version 1)
Quarter: 2018Q4

REPORT INFORMATION
  Report Type: Spontaneous
  Country: US (occurrence: US)
  Receive Date: 20181017
  Receipt Date: 20181017
  Transmission Date: 20190205
  Serious: Yes (Hospitalization)
  Sender: FDA-Public Use
  Company Number: None

PATIENT
  Age: 72 Year
  Sex: Female
  Weight: 59 kg

DRUGS (2)
  1. IPILIMUMAB [Suspect]
     Active Substance: IPILIMUMAB
     Indication: THYROID CANCER
     Dosage: OTHER DOSE:EVERY 6 WEEKS;?
     Route: 042
     Dates: start: 20180125
  2. NIVOLUMAB [Suspect]
     Active Substance: NIVOLUMAB
     Indication: THYROID CANCER
     Route: 042
     Dates: start: 20180108

REACTIONS (15)
  - Liver function test increased [None]
  - Blood bilirubin increased [None]
  - Cortisol decreased [None]
  - Pneumonia [None]
  - Nephropathy toxic [None]
  - Fatigue [None]
  - Bile duct stone [None]
  - Bile duct obstruction [None]
  - Renal mass [None]
  - Cough [None]
  - Pneumonitis [None]
  - Nausea [None]
  - Vomiting [None]
  - Blood creatinine increased [None]
  - Septic shock [None]

NARRATIVE: CASE EVENT DATE: 20181014
